FAERS Safety Report 12707872 (Version 1)
Quarter: 2016Q3

REPORT INFORMATION
  Report Type: Spontaneous
  Country: PE (occurrence: PE)
  Receive Date: 20160901
  Receipt Date: 20160901
  Transmission Date: 20161109
  Serious: Yes (Other)
  Sender: FDA-Public Use
  Company Number: PE-PFIZER INC-2016403697

PATIENT
  Age: 77 Year
  Sex: Female

DRUGS (4)
  1. XALATAN [Suspect]
     Active Substance: LATANOPROST
     Indication: GLAUCOMA
     Dosage: 1 GTT (ON EACH EYE), DAILY
     Route: 047
     Dates: start: 2014
  2. ALLERGAN [Concomitant]
     Active Substance: PAPAIN
     Dosage: UNK
  3. GLAUCOTENSIL /00971201/ [Concomitant]
     Dosage: UNK
  4. VISCOTEARS [Concomitant]
     Active Substance: CARBOMER
     Dosage: UNK

REACTIONS (4)
  - Vulval cancer [Unknown]
  - Dry eye [Unknown]
  - Product quality issue [Unknown]
  - Intraocular pressure increased [Unknown]
